FAERS Safety Report 5661951-3 (Version None)
Quarter: 2008Q1

REPORT INFORMATION
  Report Type: 
  Country: None (occurrence: None)
  Receive Date: 20080310
  Receipt Date: 20080310
  Transmission Date: 20080703
  Serious: Yes (Other)
  Sender: FDA-Public Use
  Company Number: None

PATIENT
  Age: 60 Year
  Sex: Female
  Weight: 76.2043 kg

DRUGS (2)
  1. LYRICA [Suspect]
     Indication: NEURALGIA
     Dosage: 50 MG. THREE TIMES DAILY PO
     Route: 048
     Dates: start: 20071120, end: 20071225
  2. LYRICA [Suspect]
     Indication: NEUROPATHY PERIPHERAL
     Dosage: 50 MG. THREE TIMES DAILY PO
     Route: 048
     Dates: start: 20071120, end: 20071225

REACTIONS (5)
  - DRUG WITHDRAWAL SYNDROME [None]
  - DYSPNOEA [None]
  - FLUID RETENTION [None]
  - INFLUENZA LIKE ILLNESS [None]
  - OEDEMA PERIPHERAL [None]
